FAERS Safety Report 9190895 (Version 1)
Quarter: 2013Q1

REPORT INFORMATION
  Report Type: Spontaneous
  Country: US (occurrence: None)
  Receive Date: 20120703
  Receipt Date: 20120703
  Transmission Date: 20140127
  Serious: No
  Sender: FDA-Public Use
  Company Number: PHEH2012US008834

PATIENT
  Sex: Female
  Weight: 89.8 kg

DRUGS (1)
  1. GILENYA [Suspect]
     Indication: MULTIPLE SCLEROSIS
     Route: 048
     Dates: start: 20111130

REACTIONS (4)
  - Hot flush [None]
  - Feeling hot [None]
  - Insomnia [None]
  - Body temperature increased [None]
